FAERS Safety Report 18222554 (Version 3)
Quarter: 2020Q4

REPORT INFORMATION
  Report Type: Spontaneous
  Country: US (occurrence: US)
  Receive Date: 20200902
  Receipt Date: 20201201
  Transmission Date: 20210113
  Serious: Yes (Other)
  Sender: FDA-Public Use
  Company Number: US-JNJFOC-20200837021

PATIENT
  Sex: Male
  Weight: 68.1 kg

DRUGS (2)
  1. ELMIRON [Suspect]
     Active Substance: PENTOSAN POLYSULFATE SODIUM
     Indication: PAIN
     Route: 048
     Dates: start: 201210
  2. ELMIRON [Suspect]
     Active Substance: PENTOSAN POLYSULFATE SODIUM
     Indication: CYSTITIS INTERSTITIAL

REACTIONS (4)
  - Drug ineffective [Unknown]
  - Mood altered [Unknown]
  - Cataract [Unknown]
  - Abdominal discomfort [Unknown]
